FAERS Safety Report 11862208 (Version 1)
Quarter: 2015Q4

REPORT INFORMATION
  Report Type: Spontaneous
  Country: FR (occurrence: FR)
  Receive Date: 20151222
  Receipt Date: 20151222
  Transmission Date: 20160305
  Serious: Yes (Hospitalization, Other)
  Sender: FDA-Public Use
  Company Number: FR-BRISTOL-MYERS SQUIBB COMPANY-BMS-2015-086732

PATIENT
  Age: 76 Year
  Sex: Female
  Weight: 60 kg

DRUGS (2)
  1. LOVENOX [Suspect]
     Active Substance: ENOXAPARIN SODIUM
     Indication: DEEP VEIN THROMBOSIS
     Dosage: 2 DF, QD
     Route: 058
     Dates: start: 20151014, end: 20151020
  2. COUMADINE [Suspect]
     Active Substance: WARFARIN SODIUM
     Indication: DEEP VEIN THROMBOSIS
     Dosage: 2 MG, QD
     Route: 048
     Dates: start: 20151014, end: 20151020

REACTIONS (5)
  - Haematoma evacuation [Unknown]
  - Fall [Unknown]
  - Subdural haematoma [Recovered/Resolved with Sequelae]
  - Generalised tonic-clonic seizure [Unknown]
  - Aphasia [Unknown]

NARRATIVE: CASE EVENT DATE: 20151020
